FAERS Safety Report 11203663 (Version 1)
Quarter: 2015Q2

REPORT INFORMATION
  Report Type: Spontaneous
  Country: US (occurrence: US)
  Receive Date: 20150619
  Receipt Date: 20150619
  Transmission Date: 20150821
  Serious: Yes (Other)
  Sender: FDA-Public Use
  Company Number: US-GILEAD-2015-0149432

PATIENT
  Sex: Female

DRUGS (2)
  1. HARVONI [Suspect]
     Active Substance: LEDIPASVIR\SOFOSBUVIR
     Indication: HEPATITIS C
     Dosage: UNK
     Route: 065
  2. HARVONI [Suspect]
     Active Substance: LEDIPASVIR\SOFOSBUVIR
     Dosage: UNK
     Route: 065
     Dates: start: 20150601

REACTIONS (5)
  - Alanine aminotransferase increased [Recovered/Resolved]
  - Hepatic failure [Recovered/Resolved]
  - Aspartate aminotransferase increased [Recovered/Resolved]
  - Transaminases increased [Recovered/Resolved]
  - Gastrointestinal haemorrhage [Recovered/Resolved]
